FAERS Safety Report 21134103 (Version 1)
Quarter: 2022Q3

REPORT INFORMATION
  Report Type: Spontaneous
  Country: ES (occurrence: ES)
  Receive Date: 20220726
  Receipt Date: 20220726
  Transmission Date: 20221026
  Serious: Yes (Hospitalization)
  Sender: FDA-Public Use
  Company Number: None

PATIENT
  Age: 90 Year
  Sex: Female

DRUGS (6)
  1. FENTANYL [Suspect]
     Active Substance: FENTANYL
     Indication: Osteoarthritis
     Dosage: UNK (1.0 PATCH EVERY/72 HOURS)
     Route: 065
     Dates: start: 20210514, end: 20210517
  2. ACETAMINOPHEN [Concomitant]
     Active Substance: ACETAMINOPHEN
     Indication: Osteoarthritis
     Dosage: 1 GRAM, BID
     Route: 048
     Dates: start: 20120619
  3. Furosemida aurovitas [Concomitant]
     Indication: Atrioventricular block
     Dosage: 40 MILLIGRAM, QD (BREAKFAST )
     Route: 048
     Dates: start: 20200911
  4. CYANOCOBALAMIN [Concomitant]
     Active Substance: CYANOCOBALAMIN
     Indication: Pernicious anaemia
     Dosage: 1 MILLIGRAM (1.0 MG EVERY/60 DAYS)
     Route: 030
     Dates: start: 20150613
  5. FAMOTIDINA NORMON [Concomitant]
     Indication: Burning sensation
     Dosage: 20 MILLIGRAM, QD (DINNER)
     Route: 048
     Dates: start: 20210305
  6. LORAZEPAM [Concomitant]
     Active Substance: LORAZEPAM
     Indication: Persistent depressive disorder
     Dosage: 1 MILLIGRAM, TID
     Route: 048
     Dates: start: 20200825

REACTIONS (1)
  - Delirium [Recovered/Resolved]

NARRATIVE: CASE EVENT DATE: 20210517
